FAERS Safety Report 9333603 (Version 1)
Quarter: 2013Q2

REPORT INFORMATION
  Report Type: Spontaneous
  Country: US (occurrence: US)
  Receive Date: 20130606
  Receipt Date: 20130606
  Transmission Date: 20140414
  Serious: No
  Sender: FDA-Public Use
  Company Number: US-AMGEN-USASP2012079696

PATIENT
  Age: 83 Year
  Sex: Female

DRUGS (4)
  1. PROLIA [Suspect]
     Indication: OSTEOPOROSIS POSTMENOPAUSAL
     Dosage: UNK
     Dates: start: 201211
  2. MIRALAX [Concomitant]
     Dosage: UNK
  3. CITRACAL [Concomitant]
     Dosage: UNK
  4. VITAMINS [Concomitant]
     Dosage: UNK

REACTIONS (3)
  - Rash erythematous [Unknown]
  - Scab [Unknown]
  - Arthritis [Unknown]
